FAERS Safety Report 17660154 (Version 1)
Quarter: 2020Q2

REPORT INFORMATION
  Report Type: Report from Study
  Country: US (occurrence: US)
  Receive Date: 20200413
  Receipt Date: 20200413
  Transmission Date: 20200713
  Serious: Yes (Hospitalization, Other)
  Sender: FDA-Public Use
  Company Number: US-ROCHE-2577386

PATIENT
  Age: 54 Year
  Sex: Female
  Weight: 72.64 kg

DRUGS (1)
  1. OCREVUS [Suspect]
     Active Substance: OCRELIZUMAB
     Indication: RELAPSING-REMITTING MULTIPLE SCLEROSIS
     Dosage: 29/MAR/2019, 30/SEP/2019
     Route: 042
     Dates: start: 20190315

REACTIONS (4)
  - Meningitis [Recovered/Resolved]
  - Nephrolithiasis [Recovered/Resolved]
  - Sepsis [Recovered/Resolved]
  - Urinary tract infection [Not Recovered/Not Resolved]

NARRATIVE: CASE EVENT DATE: 201910
